FAERS Safety Report 8597732-0 (Version None)
Quarter: 2012Q3

REPORT INFORMATION
  Report Type: 
  Country: None (occurrence: None)
  Receive Date: 20120816
  Receipt Date: 20120810
  Transmission Date: 20120928
  Serious: Yes (Other)
  Sender: FDA-Public Use
  Company Number: PHHY2012BR060601

PATIENT
  Sex: Male

DRUGS (7)
  1. MOTILIUM [Concomitant]
  2. TRILEPTAL [Suspect]
     Dosage: 6 %, UNK
  3. PHENYTOIN [Concomitant]
     Indication: CONVULSION
  4. TRILEPTAL [Suspect]
     Indication: CONVULSION
     Dosage: 2 DF, DAILY
     Route: 048
  5. RANITIDINE [Concomitant]
  6. PHENOBARBITAL TAB [Concomitant]
     Indication: CONVULSION
     Dosage: 2 TABLETS DAILY
  7. FUROSEMIDE [Concomitant]

REACTIONS (3)
  - SEPSIS [None]
  - LUNG INFECTION [None]
  - CONVULSION [None]
